FAERS Safety Report 8737400 (Version 2)
Quarter: 2012Q4

REPORT INFORMATION
  Report Type: Spontaneous
  Country: US (occurrence: None)
  Receive Date: 20120806
  Receipt Date: 20120813
  Transmission Date: 20130627
  Serious: Yes (Other)
  Sender: FDA-Public Use
  Company Number: DKLU1083461

PATIENT
  Age: 72 Year
  Sex: Male

DRUGS (19)
  1. SABRIL [Suspect]
     Indication: PRODUCT USED FOR UNKNOWN INDICATION
     Dosage: 500 MG AM,ORAL1000 MG PM,ORAL1500MG, 2IN 1 D,ORAL,1000 MGAM, ORAL1500 MG,PMORAL,1000 MG, 2 IN 1
     Route: 048
     Dates: start: 201005
  2. SABRIL [Suspect]
     Indication: PRODUCT USED FOR UNKNOWN INDICATION
     Dosage: 500 MG AM,ORAL1000 MG PM,ORAL1500MG, 2IN 1 D,ORAL,1000 MGAM, ORAL1500 MG,PMORAL,1000 MG, 2 IN 1
     Route: 048
     Dates: start: 201005
  3. SABRIL [Suspect]
     Indication: PRODUCT USED FOR UNKNOWN INDICATION
     Dosage: 500 MG AM,ORAL1000 MG PM,ORAL1500MG, 2IN 1 D,ORAL,1000 MGAM, ORAL1500 MG,PMORAL,1000 MG, 2 IN 1
     Route: 048
     Dates: start: 201206
  4. SABRIL [Suspect]
     Indication: PRODUCT USED FOR UNKNOWN INDICATION
     Dosage: 500 MG AM,ORAL1000 MG PM,ORAL1500MG, 2IN 1 D,ORAL,1000 MGAM, ORAL1500 MG,PMORAL,1000 MG, 2 IN 1
     Route: 048
  5. CARBAMAZEPINE [Concomitant]
  6. BENZODIAZEPINES (BENZODIAZEPINE RELATED DRUGS) [Concomitant]
  7. NEURONTIN [Concomitant]
  8. VIMPAT [Concomitant]
  9. CARVEDILOL [Concomitant]
  10. SIMVASTATIN [Concomitant]
  11. NITROGLYCERIN (CLYCERYL TRINITRATE) [Concomitant]
  12. ZONISAMIDE [Concomitant]
  13. LAMOTRIGINE [Concomitant]
  14. RAMIPRIL [Concomitant]
  15. PRADAXA [Concomitant]
  16. PLAVIX [Concomitant]
  17. LEVETIRCETAM(LEVETIRCETAM) [Concomitant]
  18. DEPAKOTE [Concomitant]
  19. PHENYTOIN(PHENYTOIN) [Concomitant]

REACTIONS (5)
  - Atrial fibrillation [None]
  - Confusional state [None]
  - Fatigue [None]
  - Thinking abnormal [None]
  - Cardiac failure [None]
